FAERS Safety Report 20280434 (Version 1)
Quarter: 2022Q1

REPORT INFORMATION
  Report Type: Spontaneous
  Country: EE (occurrence: EE)
  Receive Date: 20220103
  Receipt Date: 20220103
  Transmission Date: 20220424
  Serious: Yes (Other)
  Sender: FDA-Public Use
  Company Number: EE-002147023-NVSC2021EE284180

PATIENT
  Age: 72 Year
  Sex: Female

DRUGS (8)
  1. CYTARABINE [Suspect]
     Active Substance: CYTARABINE
     Indication: Acute myeloid leukaemia
     Dosage: UNK (DAYS 1-5)
     Route: 065
     Dates: start: 202002
  2. CYTARABINE [Suspect]
     Active Substance: CYTARABINE
     Dosage: UNK (DAYS 1-5)
     Route: 065
     Dates: start: 202001
  3. CYTARABINE [Suspect]
     Active Substance: CYTARABINE
     Dosage: UNK ((DAYS 1, 3, 5)
     Route: 065
     Dates: start: 201911
  4. MIDOSTAURIN [Suspect]
     Active Substance: MIDOSTAURIN
     Indication: Acute myeloid leukaemia
     Dosage: 25 MG, BID (DAYS 8-21)
     Route: 065
     Dates: start: 202002
  5. MIDOSTAURIN [Suspect]
     Active Substance: MIDOSTAURIN
     Dosage: 25 MG, BID (MAINTENANCE THERAPY)
     Route: 065
     Dates: start: 202005
  6. MIDOSTAURIN [Suspect]
     Active Substance: MIDOSTAURIN
     Dosage: UNK (50 MGX2-25 MGX2 (DAYS 8-21)
     Route: 065
     Dates: start: 201910
  7. MIDOSTAURIN [Suspect]
     Active Substance: MIDOSTAURIN
     Dosage: 25 MG, BID (DAYS 8-21)
     Route: 065
     Dates: start: 202001
  8. MIDOSTAURIN [Suspect]
     Active Substance: MIDOSTAURIN
     Dosage: 25 MG, BID (DAYS 8-21)
     Route: 065
     Dates: start: 201911

REACTIONS (8)
  - Febrile neutropenia [Unknown]
  - Pancytopenia [Unknown]
  - Pneumonia [Unknown]
  - Escherichia sepsis [Unknown]
  - Infection [Unknown]
  - Pyrexia [Unknown]
  - Nausea [Unknown]
  - Diarrhoea [Unknown]

NARRATIVE: CASE EVENT DATE: 20191001
